FAERS Safety Report 25498558 (Version 1)
Quarter: 2025Q2

REPORT INFORMATION
  Report Type: Spontaneous
  Country: US (occurrence: None)
  Receive Date: 20250630
  Receipt Date: 20250630
  Transmission Date: 20250716
  Serious: Yes (Death)
  Sender: FDA-CTU
  Company Number: None

PATIENT
  Age: 55 Year
  Sex: Male

DRUGS (1)
  1. ZARXIO [Suspect]
     Active Substance: FILGRASTIM-SNDZ
     Indication: Neutropenia
     Dosage: FREQUENCY : DAILY;?
     Route: 058
     Dates: start: 20250617

REACTIONS (1)
  - Death [None]

NARRATIVE: CASE EVENT DATE: 20250628
